FAERS Safety Report 8012725-X (Version None)
Quarter: 2011Q4

REPORT INFORMATION
  Report Type: 
  Country: None (occurrence: None)
  Receive Date: 20111229
  Receipt Date: 20111219
  Transmission Date: 20120403
  Serious: Yes (Hospitalization)
  Sender: FDA-Public Use
  Company Number: US-BAYER-2011-062461

PATIENT
  Age: 46 Year
  Sex: Female
  Weight: 82.993 kg

DRUGS (5)
  1. SYNTHROID [Concomitant]
     Indication: THYROID DISORDER
     Dosage: 137 MG, UNK
  2. LEXAPRO [Concomitant]
     Dosage: 5 MG, UNK
  3. YAZ [Suspect]
     Indication: HORMONE SUPPRESSION THERAPY
     Dosage: UNK
     Dates: start: 20080401, end: 20090701
  4. YASMIN [Suspect]
     Indication: HORMONE SUPPRESSION THERAPY
     Dosage: UNK
     Dates: start: 20040101, end: 20050101
  5. LORAZEPAM [Concomitant]
     Dosage: 0.1 MG, UNK

REACTIONS (7)
  - PSYCHOLOGICAL TRAUMA [None]
  - FEAR [None]
  - ANXIETY [None]
  - CEREBROVASCULAR ACCIDENT [None]
  - TRANSIENT ISCHAEMIC ATTACK [None]
  - PAIN [None]
  - EMOTIONAL DISTRESS [None]
